FAERS Safety Report 8063337-3 (Version None)
Quarter: 2012Q1

REPORT INFORMATION
  Report Type: 
  Country: None (occurrence: None)
  Receive Date: 20120123
  Receipt Date: 20120118
  Transmission Date: 20120608
  Serious: Yes (Death)
  Sender: FDA-Public Use
  Company Number: IN-SANOFI-AVENTIS-2012SA003543

PATIENT
  Sex: Female

DRUGS (2)
  1. NEUPOGEN [Concomitant]
  2. DOCETAXEL [Suspect]
     Indication: HEAD AND NECK CANCER
     Route: 042

REACTIONS (1)
  - ELECTROLYTE IMBALANCE [None]
